FAERS Safety Report 20916890 (Version 1)
Quarter: 2022Q2

REPORT INFORMATION
  Report Type: Report from Study
  Country: US (occurrence: US)
  Receive Date: 20220605
  Receipt Date: 20220605
  Transmission Date: 20220721
  Serious: Yes (Other)
  Sender: FDA-Public Use
  Company Number: US-ABBVIE-22K-163-4420675-00

PATIENT
  Sex: Male

DRUGS (1)
  1. HUMIRA [Suspect]
     Active Substance: ADALIMUMAB
     Indication: Crohn^s disease
     Route: 058

REACTIONS (9)
  - Schwannoma [Unknown]
  - Intestinal resection [Unknown]
  - Knee operation [Unknown]
  - Spinal laminectomy [Unknown]
  - Hip arthroplasty [Unknown]
  - Pulmonary embolism [Unknown]
  - Gastrointestinal haemorrhage [Unknown]
  - Chondrocalcinosis pyrophosphate [Unknown]
  - Nephrolithiasis [Unknown]
